FAERS Safety Report 12274781 (Version 1)
Quarter: 2016Q2

REPORT INFORMATION
  Report Type: Spontaneous
  Country: US (occurrence: US)
  Receive Date: 20160415
  Receipt Date: 20160415
  Transmission Date: 20160815
  Serious: No
  Sender: FDA-Public Use
  Company Number: US-ALLERGAN-1508924US

PATIENT
  Age: 3 Decade
  Sex: Female

DRUGS (1)
  1. LATISSE [Suspect]
     Active Substance: BIMATOPROST
     Indication: PRODUCT USED FOR UNKNOWN INDICATION
     Dosage: 1 APP PER EYE, NIGHTLY
     Route: 061

REACTIONS (2)
  - Eyelids pruritus [Recovering/Resolving]
  - Erythema of eyelid [Recovered/Resolved]
